FAERS Safety Report 16714224 (Version 2)
Quarter: 2019Q3

REPORT INFORMATION
  Report Type: Spontaneous
  Country: US (occurrence: US)
  Receive Date: 20190819
  Receipt Date: 20190819
  Transmission Date: 20191004
  Serious: No
  Sender: FDA-Public Use
  Company Number: US-MALLINCKRODT-T201902421

PATIENT
  Sex: Female

DRUGS (2)
  1. OXYCODONE/ACETAMINOPHEN [Suspect]
     Active Substance: ACETAMINOPHEN\OXYCODONE HYDROCHLORIDE
     Dosage: 5/325 MG, SOME DAYS TAKE 3, OTHER DAYS DO NOT TAKE ANY
     Route: 048
     Dates: start: 201903, end: 20190311
  2. OXYCODONE/ACETAMINOPHEN [Suspect]
     Active Substance: ACETAMINOPHEN\OXYCODONE HYDROCHLORIDE
     Indication: DYSMENORRHOEA
     Dosage: 5/325 MG, SOME DAYS TAKE 3, OTHER DAYS DO NOT TAKE ANY
     Route: 048

REACTIONS (5)
  - Feeling abnormal [Unknown]
  - Pruritus [Recovered/Resolved]
  - Product quality issue [Unknown]
  - Drug ineffective [Not Recovered/Not Resolved]
  - Anxiety [Recovered/Resolved]

NARRATIVE: CASE EVENT DATE: 201903
